FAERS Safety Report 20972351 (Version 3)
Quarter: 2022Q3

REPORT INFORMATION
  Report Type: Spontaneous
  Country: GB (occurrence: GB)
  Receive Date: 20220617
  Receipt Date: 20220715
  Transmission Date: 20221027
  Serious: Yes (Other)
  Sender: FDA-Public Use
  Company Number: GB-BEH-2022146311

PATIENT
  Sex: Female

DRUGS (1)
  1. HIZENTRA [Suspect]
     Active Substance: HUMAN IMMUNOGLOBULIN G
     Dosage: 8 GRAM
     Route: 065

REACTIONS (6)
  - No adverse event [Unknown]
  - Product dose omission issue [Unknown]
  - Therapy interrupted [Unknown]
  - Product prescribing issue [Unknown]
  - Neoplasm malignant [Unknown]
  - Infection [Unknown]
